FAERS Safety Report 6528097-3 (Version None)
Quarter: 2010Q1

REPORT INFORMATION
  Report Type: 
  Country: None (occurrence: None)
  Receive Date: 20100105
  Receipt Date: 20100105
  Transmission Date: 20100710
  Serious: No
  Sender: FDA-Public Use
  Company Number: None

PATIENT
  Age: 70 Year
  Sex: Male

DRUGS (1)
  1. ZIPRASIDONE HCL [Suspect]
     Indication: BIPOLAR I DISORDER
     Dosage: 60 MG HS PO
     Route: 048
     Dates: start: 20091101, end: 20091108

REACTIONS (2)
  - CHOLINERGIC SYNDROME [None]
  - PARKINSONISM [None]
